FAERS Safety Report 8421206-0 (Version None)
Quarter: 2012Q2

REPORT INFORMATION
  Report Type: 
  Country: None (occurrence: None)
  Receive Date: 20120608
  Receipt Date: 20120607
  Transmission Date: 20120825
  Serious: Yes (Death)
  Sender: FDA-Public Use
  Company Number: US-PFIZER INC-2010000577

PATIENT
  Age: 47 Year
  Sex: Female

DRUGS (5)
  1. DIAZEPAM [Suspect]
     Route: 048
  2. MIRTAZAPINE [Suspect]
     Route: 048
  3. VERAPAMIL HCL [Suspect]
     Route: 048
  4. OXYCODONE HCL [Suspect]
     Route: 048
  5. HYDROCODONE [Suspect]
     Route: 048

REACTIONS (3)
  - RESPIRATORY ARREST [None]
  - SNAKE BITE [None]
  - CARDIAC ARREST [None]
